FAERS Safety Report 7550632-7 (Version None)
Quarter: 2011Q2

REPORT INFORMATION
  Report Type: 
  Country: None (occurrence: None)
  Receive Date: 20110608
  Receipt Date: 20110125
  Transmission Date: 20111010
  Serious: Yes (Other)
  Sender: FDA-Public Use
  Company Number: JP-ACCORD-009415

PATIENT
  Age: 67 Year
  Sex: Female

DRUGS (1)
  1. PACLITAXEL [Suspect]
     Indication: GASTRIC CANCER
     Dosage: 50.00 MG/M2 INTRAVENOUS 80.00 MG/M2-2.00 TIMES PER-1.0DAYS
     Route: 042

REACTIONS (13)
  - RECTAL STENOSIS [None]
  - OFF LABEL USE [None]
  - ASCITES [None]
  - RESPIRATORY FAILURE [None]
  - WEIGHT DECREASED [None]
  - OEDEMA PERIPHERAL [None]
  - REFUSAL OF TREATMENT BY PATIENT [None]
  - INCONTINENCE [None]
  - ACTIVITIES OF DAILY LIVING IMPAIRED [None]
  - URETERIC OBSTRUCTION [None]
  - MALIGNANT PLEURAL EFFUSION [None]
  - TREATMENT FAILURE [None]
  - DIARRHOEA [None]
